FAERS Safety Report 12639544 (Version 1)
Quarter: 2016Q3

REPORT INFORMATION
  Report Type: Spontaneous
  Country: US (occurrence: None)
  Receive Date: 20160809
  Receipt Date: 20160809
  Transmission Date: 20161109
  Serious: Yes (Other)
  Sender: FDA-Public Use
  Company Number: None

PATIENT
  Age: 20 Year
  Sex: Female
  Weight: 56.7 kg

DRUGS (1)
  1. NEXPLANON [Suspect]
     Active Substance: ETONOGESTREL
     Indication: CONTRACEPTION
     Dosage: 1 IMPLANT CONSTANT GIVEN INTO/UNDER THE SKIN
     Route: 058
     Dates: start: 20150504

REACTIONS (10)
  - Depression [None]
  - Fungal infection [None]
  - Personality change [None]
  - Pruritus [None]
  - Disease recurrence [None]
  - Bacterial vaginosis [None]
  - Vulval laceration [None]
  - Dyspareunia [None]
  - Pain [None]
  - Vulval ulceration [None]

NARRATIVE: CASE EVENT DATE: 20150710
